FAERS Safety Report 18303113 (Version 1)
Quarter: 2020Q3

REPORT INFORMATION
  Report Type: Spontaneous
  Country: ES (occurrence: ES)
  Receive Date: 20200924
  Receipt Date: 20200924
  Transmission Date: 20201103
  Serious: Yes (Life-Threatening, Hospitalization, Other)
  Sender: FDA-Public Use
  Company Number: ES-SUN PHARMACEUTICAL INDUSTRIES LTD-2020RR-249511

PATIENT
  Age: 43 Year
  Sex: Male

DRUGS (6)
  1. QUETIAPINA (1136A) [Interacting]
     Active Substance: QUETIAPINE
     Indication: PRODUCT USED FOR UNKNOWN INDICATION
     Dosage: UNK
     Route: 048
     Dates: start: 20191104, end: 20191104
  2. ALPRAZOLAM. [Suspect]
     Active Substance: ALPRAZOLAM
     Indication: PRODUCT USED FOR UNKNOWN INDICATION
     Dosage: UNK
     Route: 048
     Dates: start: 20191104, end: 20191104
  3. QUETIAPINA (1136A) [Concomitant]
     Active Substance: QUETIAPINE
     Indication: DEPRESSION
     Dosage: 50 MILLIGRAM, DAILY
     Route: 048
     Dates: start: 20190802, end: 20191103
  4. TOPIRAMATO (7245A) [Concomitant]
     Active Substance: TOPIRAMATE
     Indication: PAIN
     Dosage: 150 MILLIGRAM, DAILY
     Route: 048
     Dates: start: 20190508, end: 20191103
  5. LORAZEPAM (1864A) [Concomitant]
     Active Substance: LORAZEPAM
     Indication: DEPRESSION
     Dosage: 2 MILLIGRAM, DAILY
     Route: 048
     Dates: start: 20190508, end: 20191103
  6. DESVENLAFAXINA SUCCINATO MONOHIDRATO (8296LY) [Concomitant]
     Active Substance: DESVENLAFAXINE SUCCINATE
     Indication: DEPRESSION
     Dosage: 250 MILLIGRAM, DAILY
     Route: 048
     Dates: start: 20170120, end: 20191103

REACTIONS (3)
  - Coma [Recovered/Resolved]
  - Suicide attempt [Unknown]
  - Intentional overdose [Recovered/Resolved]

NARRATIVE: CASE EVENT DATE: 20191104
